FAERS Safety Report 12111437 (Version 3)
Quarter: 2016Q1

REPORT INFORMATION
  Report Type: Report from Study
  Country: US (occurrence: US)
  Receive Date: 20160224
  Receipt Date: 20160317
  Transmission Date: 20160526
  Serious: Yes (Hospitalization)
  Sender: FDA-Public Use
  Company Number: US-ACTELION-A-NJ2016-130830

PATIENT
  Age: 59 Year
  Sex: Female

DRUGS (4)
  1. SILDENAFIL. [Concomitant]
     Active Substance: SILDENAFIL
  2. VELETRI [Suspect]
     Active Substance: EPOPROSTENOL
     Indication: PULMONARY HYPERTENSION
     Dosage: 6 NG/KG, PER MIN
     Route: 042
     Dates: start: 20160118
  3. REVATIO [Concomitant]
     Active Substance: SILDENAFIL CITRATE
  4. WARFARIN [Concomitant]
     Active Substance: WARFARIN

REACTIONS (10)
  - Diarrhoea [Unknown]
  - Pain [Unknown]
  - Clostridium difficile infection [Unknown]
  - Dehydration [Unknown]
  - Pain in jaw [Unknown]
  - Heart rate increased [Recovering/Resolving]
  - Catheter site pruritus [Unknown]
  - Pulmonary arterial hypertension [Unknown]
  - Headache [Unknown]
  - Vomiting [Unknown]
